FAERS Safety Report 9366403 (Version 2)
Quarter: 2013Q3

REPORT INFORMATION
  Report Type: Spontaneous
  Country: FR (occurrence: FR)
  Receive Date: 20130625
  Receipt Date: 20130910
  Transmission Date: 20140515
  Serious: Yes (Hospitalization)
  Sender: FDA-Public Use
  Company Number: FR-TEVA-415004ISR

PATIENT
  Age: 86 Year
  Sex: Female

DRUGS (8)
  1. FUROSEMIDE TEVA 40 MG [Suspect]
     Indication: CARDIAC DISORDER
     Route: 048
     Dates: start: 20130425, end: 20130605
  2. ZOPICLONE [Concomitant]
     Indication: SLEEP DISORDER
     Dosage: 75 MILLIGRAM DAILY;
  3. ACEBUTOLOL 200 [Concomitant]
     Indication: CORONARY ARTERY DISEASE
  4. PREVISCAN [Concomitant]
     Indication: ATRIAL FIBRILLATION
     Route: 048
  5. KARDEGIC [Concomitant]
     Dosage: 75 MILLIGRAM DAILY;
  6. OMEPRAZOLE [Concomitant]
     Indication: GASTROOESOPHAGEAL REFLUX DISEASE
     Dosage: 20 MILLIGRAM DAILY;
  7. DESLORATADINE 5 MG [Concomitant]
     Indication: RHINITIS ALLERGIC
     Dosage: 5 MILLIGRAM DAILY;
  8. NO DRUG NAME [Concomitant]

REACTIONS (5)
  - Myocardial infarction [Unknown]
  - Fall [Recovered/Resolved]
  - Acute coronary syndrome [Unknown]
  - Persecutory delusion [Recovered/Resolved with Sequelae]
  - Hallucination [Recovered/Resolved with Sequelae]
